FAERS Safety Report 19032750 (Version 1)
Quarter: 2021Q1

REPORT INFORMATION
  Report Type: Spontaneous
  Country: US (occurrence: US)
  Receive Date: 20210319
  Receipt Date: 20210319
  Transmission Date: 20210420
  Serious: Yes (Other)
  Sender: FDA-Public Use
  Company Number: US-PFIZER INC-2021255233

PATIENT
  Age: 57 Year
  Sex: Female

DRUGS (1)
  1. XELJANZ XR [Suspect]
     Active Substance: TOFACITINIB CITRATE
     Dosage: 11 MG

REACTIONS (6)
  - Near death experience [Unknown]
  - Fall [Not Recovered/Not Resolved]
  - Insomnia [Unknown]
  - Peripheral swelling [Unknown]
  - Dysgraphia [Unknown]
  - Limb injury [Unknown]

NARRATIVE: CASE EVENT DATE: 202103
